FAERS Safety Report 9506181 (Version 1)
Quarter: 2013Q1

REPORT INFORMATION
  Report Type: Spontaneous
  Country: US (occurrence: None)
  Receive Date: 20130301
  Receipt Date: 20130301
  Transmission Date: 20140127
  Serious: Yes (Hospitalization, Other)
  Sender: FDA-Public Use
  Company Number: 349266

PATIENT
  Sex: Male

DRUGS (2)
  1. NOVOLIN R (INSULIN HUMAN) SOLUTION FOR INJECTION, 100IU/ML [Suspect]
     Indication: TYPE 2 DIABETES MELLITUS
     Dosage: SLIDING SCALE, SUBCUTANEOUS
     Route: 058
     Dates: start: 20120409
  2. LANTUS (INSULIN GLARGINE) [Suspect]

REACTIONS (2)
  - Wrong technique in drug usage process [None]
  - Hypoglycaemic unconsciousness [None]
